FAERS Safety Report 8429972-5 (Version None)
Quarter: 2012Q2

REPORT INFORMATION
  Report Type: 
  Country: None (occurrence: None)
  Receive Date: 20120323
  Receipt Date: 20110825
  Transmission Date: 20120825
  Serious: Yes (Hospitalization)
  Sender: FDA-Public Use
  Company Number: 163-21880-11083083

PATIENT
  Age: 75 Year
  Sex: Female

DRUGS (9)
  1. ASPIRIN [Concomitant]
  2. REVLIMID [Suspect]
     Indication: MULTIPLE MYELOMA
     Dosage: 10 MG, QD X 1-21, PO, 10 MG, QD X 1-21, PO
     Route: 048
     Dates: start: 20110801
  3. REVLIMID [Suspect]
     Indication: MULTIPLE MYELOMA
     Dosage: 10 MG, QD X 1-21, PO, 10 MG, QD X 1-21, PO
     Route: 048
     Dates: start: 20081201
  4. DECADRON [Concomitant]
  5. IRON (IRON) [Concomitant]
  6. OXYCODONE HCL [Concomitant]
  7. LEVOTHYROXINE SODIUM [Concomitant]
  8. METFFORMIN HYDROCHLORIDE [Concomitant]
  9. VELCADE [Concomitant]

REACTIONS (1)
  - RENAL FAILURE ACUTE [None]
